FAERS Safety Report 4437352-2 (Version None)
Quarter: 2004Q3

REPORT INFORMATION
  Report Type: 
  Country: None (occurrence: None)
  Receive Date: 20040726
  Receipt Date: 20040422
  Transmission Date: 20050211
  Serious: No
  Sender: FDA-Public Use
  Company Number: USA040363291

PATIENT
  Age: 71 Year
  Sex: Female
  Weight: 59 kg

DRUGS (6)
  1. FORTEO [Suspect]
     Indication: OSTEOPOROSIS
     Dosage: 20 UG/1 DAY
     Dates: start: 20040325
  2. ASPIRIN [Concomitant]
  3. AREDIA [Concomitant]
  4. HYZAAR [Concomitant]
  5. PLAQUENIL [Concomitant]
  6. VITAMIN [Concomitant]

REACTIONS (9)
  - ABDOMINAL DISTENSION [None]
  - BODY TEMPERATURE INCREASED [None]
  - CHEST DISCOMFORT [None]
  - DIZZINESS [None]
  - EYELID OEDEMA [None]
  - INJECTION SITE BURNING [None]
  - INJECTION SITE HAEMORRHAGE [None]
  - MUSCLE TWITCHING [None]
  - NAUSEA [None]
